FAERS Safety Report 9735355 (Version 2)
Quarter: 2014Q1

REPORT INFORMATION
  Report Type: Report from Study
  Country: JP (occurrence: JP)
  Receive Date: 20131206
  Receipt Date: 20140221
  Transmission Date: 20141002
  Serious: Yes (Life-Threatening, Other)
  Sender: FDA-Public Use
  Company Number: JP-TAKEDA-2013TJP003441

PATIENT
  Age: 78 Year
  Sex: Female
  Weight: 46 kg

DRUGS (11)
  1. ALOGLIPTIN [Suspect]
     Indication: TYPE 2 DIABETES MELLITUS
     Dosage: 12.5 MG, QD
     Route: 048
     Dates: start: 20120419
  2. AMARYL [Concomitant]
     Indication: TYPE 2 DIABETES MELLITUS
     Dosage: 3 MG, 1 DAYS
     Route: 048
     Dates: start: 20130312
  3. GLUCOBAY [Concomitant]
     Indication: TYPE 2 DIABETES MELLITUS
     Dosage: 150 MG, 1 DAYS
     Route: 048
     Dates: start: 20130312
  4. FERROMIA                           /00023520/ [Concomitant]
     Dosage: 100 MG, 1 DAYS
     Route: 048
  5. FRANDOL TAPE [Concomitant]
     Dosage: 20 MG, 1 DAYS
     Route: 062
  6. MEVALOTIN [Concomitant]
     Dosage: 10 MG, 1 DAYS
     Route: 048
  7. MAGMITT [Concomitant]
     Dosage: 330 MG,1 DAYS
     Route: 048
  8. NEXIUM                             /01479302/ [Concomitant]
     Dosage: 20 MG, 1 DAYS
     Route: 048
  9. THIATON [Concomitant]
     Dosage: 30 MG, 1 DAYS
     Route: 048
  10. GANATON [Concomitant]
     Dosage: 150 MG, 1 DAYS
     Route: 048
  11. GASTROM [Concomitant]
     Dosage: 3 G, 1 DAYS
     Route: 048

REACTIONS (2)
  - Rectosigmoid cancer [Recovering/Resolving]
  - Condition aggravated [Recovering/Resolving]
